FAERS Safety Report 17018692 (Version 1)
Quarter: 2019Q4

REPORT INFORMATION
  Report Type: Spontaneous
  Country: US (occurrence: US)
  Receive Date: 20191111
  Receipt Date: 20191111
  Transmission Date: 20200122
  Serious: Yes (Other)
  Sender: FDA-Public Use
  Company Number: US-009507513-1911USA003516

PATIENT
  Age: 84 Year
  Sex: Female

DRUGS (1)
  1. JANUVIA [Suspect]
     Active Substance: SITAGLIPTIN PHOSPHATE
     Route: 048

REACTIONS (7)
  - Balance disorder [Unknown]
  - Dizziness [Unknown]
  - Myocardial infarction [Unknown]
  - Abdominal discomfort [Unknown]
  - Faeces discoloured [Unknown]
  - Fall [Unknown]
  - Weight decreased [Unknown]
